FAERS Safety Report 5674625-X (Version None)
Quarter: 2008Q1

REPORT INFORMATION
  Report Type: 
  Country: None (occurrence: None)
  Receive Date: 20080319
  Receipt Date: 20080319
  Transmission Date: 20080703
  Serious: No
  Sender: FDA-Public Use
  Company Number: None

PATIENT
  Age: 54 Year
  Sex: Male
  Weight: 88.4514 kg

DRUGS (1)
  1. CREST PRO HEALTH DENTAL RINSE [Suspect]
     Indication: BREATH ODOUR
     Dosage: 1/2 CUPFUL DAILY DENTAL
     Route: 004
     Dates: start: 20080222, end: 20080318

REACTIONS (1)
  - TOOTH DISCOLOURATION [None]
